FAERS Safety Report 8834840 (Version 1)
Quarter: 2012Q4

REPORT INFORMATION
  Report Type: 
  Country: RO (occurrence: RO)
  Receive Date: 20121010
  Receipt Date: 20121010
  Transmission Date: 20130627
  Serious: Yes (Hospitalization)
  Sender: FDA-Public Use
  Company Number: RO-GLAXOSMITHKLINE-B0836444A

PATIENT
  Age: 6 Year
  Sex: Female

DRUGS (1)
  1. VENTOLIN [Suspect]
     Dosage: 1.5ML per day
     Route: 055
     Dates: start: 20120923, end: 20120923

REACTIONS (4)
  - Ventricular fibrillation [Unknown]
  - Tremor [Recovered/Resolved]
  - Tachycardia [Recovered/Resolved]
  - Overdose [Unknown]
